FAERS Safety Report 7001640-6 (Version None)
Quarter: 2010Q3

REPORT INFORMATION
  Report Type: 
  Country: None (occurrence: None)
  Receive Date: 20100920
  Receipt Date: 20100911
  Transmission Date: 20110219
  Serious: Yes (Other)
  Sender: FDA-Public Use
  Company Number: MX-JNJFOC-20100904813

PATIENT
  Age: 7 Year
  Sex: Male
  Weight: 22 kg

DRUGS (7)
  1. TOPAMAX [Suspect]
     Indication: ATAXIA
     Dosage: ONE TABLET AT MORNING AND ONE AND HALF TABLET AT NIGHT
     Route: 048
  2. TOPAMAX [Suspect]
     Indication: CONVULSION
     Dosage: ONE TABLET AT MORNING AND ONE AND HALF TABLET AT NIGHT
     Route: 048
  3. STRATTERA [Suspect]
     Indication: ATTENTION DEFICIT/HYPERACTIVITY DISORDER
     Route: 048
  4. STRATTERA [Suspect]
     Route: 048
  5. EPIVAL [Concomitant]
     Indication: ATAXIA
     Dosage: TWO TABLETS AT MORNING AND THREE TABLETS AT NIGHT
     Route: 065
  6. EPIVAL [Concomitant]
     Route: 065
  7. ENSURE [Concomitant]
     Indication: MEDICAL DIET
     Route: 065

REACTIONS (7)
  - ABNORMAL BEHAVIOUR [None]
  - ANXIETY [None]
  - ATTENTION DEFICIT/HYPERACTIVITY DISORDER [None]
  - DECREASED APPETITE [None]
  - HYPOKINESIA [None]
  - VISION BLURRED [None]
  - WEIGHT DECREASED [None]
